FAERS Safety Report 7533336-6 (Version None)
Quarter: 2011Q2

REPORT INFORMATION
  Report Type: 
  Country: None (occurrence: None)
  Receive Date: 20110608
  Receipt Date: 20110524
  Transmission Date: 20111010
  Serious: Yes (Other)
  Sender: FDA-Public Use
  Company Number: US-BAYER-201027117NA

PATIENT
  Age: 31 Year
  Sex: Female
  Weight: 132 kg

DRUGS (7)
  1. FOLIC ACID [Concomitant]
     Dosage: UNK
  2. VITAMINE C [Concomitant]
  3. METFORMIN HCL [Concomitant]
     Dosage: 500 MG, 4 DAILY
  4. ZOLOFT [Concomitant]
     Dosage: UNK
     Dates: start: 20020101
  5. YAZ [Suspect]
     Indication: MENSTRUATION IRREGULAR
  6. YAZ [Suspect]
     Indication: PREMENSTRUAL SYNDROME
     Dosage: 1 TAB /DAY
     Route: 048
     Dates: start: 20080801, end: 20090301
  7. TUMS [CALCIUM CARBONATE] [Concomitant]
     Dosage: OCCASIONALLY

REACTIONS (8)
  - BILIARY COLIC [None]
  - ABDOMINAL DISTENSION [None]
  - HAEMATOCHEZIA [None]
  - NAUSEA [None]
  - DIARRHOEA [None]
  - ABDOMINAL PAIN UPPER [None]
  - CHOLELITHIASIS [None]
  - VOMITING [None]
